FAERS Safety Report 5422943-2 (Version None)
Quarter: 2007Q3

REPORT INFORMATION
  Report Type: 
  Country: None (occurrence: None)
  Receive Date: 20070820
  Receipt Date: 20070807
  Transmission Date: 20080115
  Serious: Yes (Other)
  Sender: FDA-Public Use
  Company Number: 2007SP016347

PATIENT
  Sex: Female

DRUGS (3)
  1. CLARITIN [Suspect]
     Indication: EYE PRURITUS
     Dosage: ;PO
     Route: 048
     Dates: start: 20070805
  2. CLARITIN [Suspect]
     Indication: NASAL CONGESTION
     Dosage: ;PO
     Route: 048
     Dates: start: 20070805
  3. METFORMIN HCL [Suspect]
     Indication: DRUG USE FOR UNKNOWN INDICATION

REACTIONS (4)
  - APHASIA [None]
  - DRUG HYPERSENSITIVITY [None]
  - DYSPNOEA [None]
  - SWOLLEN TONGUE [None]
